FAERS Safety Report 6415808-0 (Version None)
Quarter: 2009Q4

REPORT INFORMATION
  Report Type: 
  Country: None (occurrence: None)
  Receive Date: 20091027
  Receipt Date: 20091019
  Transmission Date: 20100525
  Serious: Yes (Other)
  Sender: FDA-Public Use
  Company Number: DE-ALEXION-A200900805

PATIENT

DRUGS (6)
  1. SOLIRIS [Suspect]
     Indication: PAROXYSMAL NOCTURNAL HAEMOGLOBINURIA
     Dosage: 600 MG, UNK
     Route: 042
     Dates: start: 20080601
  2. SOLIRIS [Suspect]
     Dosage: 900 MG, UNK
     Route: 042
  3. SOLIRIS [Suspect]
     Dosage: 600 MG, UNK
     Route: 042
  4. SOLIRIS [Suspect]
     Dosage: 300 MG, UNK
     Route: 042
  5. MARCUMAR [Concomitant]
     Indication: THROMBOSIS
     Route: 048
  6. LEVODOPA [Concomitant]
     Route: 048

REACTIONS (3)
  - DRUG INEFFECTIVE [None]
  - HAEMOLYSIS [None]
  - MYELODYSPLASTIC SYNDROME [None]
